FAERS Safety Report 8210555-7 (Version None)
Quarter: 2012Q1

REPORT INFORMATION
  Report Type: 
  Country: None (occurrence: None)
  Receive Date: 20120314
  Receipt Date: 20110825
  Transmission Date: 20120608
  Serious: No
  Sender: FDA-Public Use
  Company Number: US-ASTRAZENECA-2011SE51579

PATIENT

DRUGS (11)
  1. AVAPRO [Concomitant]
  2. PLAVIX [Concomitant]
  3. VESICARE [Concomitant]
  4. INDOMETHACIN [Concomitant]
     Indication: ARTHRITIS
  5. CRESTOR [Suspect]
     Route: 048
     Dates: start: 20110314
  6. FLUTICASONE [Concomitant]
  7. PAROXETINE HCL [Concomitant]
  8. METOPROLOL SUCCINATE EXTENDED RELEASE [Suspect]
     Route: 048
     Dates: start: 20110120
  9. DIAZEPAM [Concomitant]
  10. OMEPRAZOLE [Suspect]
     Route: 048
     Dates: start: 20110131
  11. AZITHROMYCIN [Concomitant]

REACTIONS (1)
  - ARTHRITIS [None]
